FAERS Safety Report 9637153 (Version 1)
Quarter: 2013Q4

REPORT INFORMATION
  Report Type: Spontaneous
  Country: DE (occurrence: DE)
  Receive Date: 20131022
  Receipt Date: 20131022
  Transmission Date: 20140711
  Serious: Yes (Other)
  Sender: FDA-Public Use
  Company Number: DE-JNJFOC-20131009148

PATIENT
  Sex: 0

DRUGS (5)
  1. ABCIXIMAB [Suspect]
     Indication: PLATELET AGGREGATION INHIBITION
     Route: 022
  2. ABCIXIMAB [Suspect]
     Indication: PLATELET AGGREGATION INHIBITION
     Route: 042
  3. ASPIRIN [Concomitant]
     Indication: ANTIPLATELET THERAPY
     Route: 048
  4. CLOPIDOGREL [Concomitant]
     Indication: ANTIPLATELET THERAPY
     Route: 048
  5. PRASUGREL [Concomitant]
     Indication: ANTIPLATELET THERAPY
     Route: 048

REACTIONS (2)
  - Cardiac failure congestive [Unknown]
  - Off label use [Unknown]
